FAERS Safety Report 24065390 (Version 1)
Quarter: 2024Q3

REPORT INFORMATION
  Report Type: Spontaneous
  Country: FR (occurrence: FR)
  Receive Date: 20240709
  Receipt Date: 20240709
  Transmission Date: 20241017
  Serious: Yes (Hospitalization, Other)
  Sender: B BRAUN
  Company Number: FR-B.Braun Medical Inc.-2158935

PATIENT
  Age: 66 Year
  Sex: Male
  Weight: 61 kg

DRUGS (2)
  1. ACETAMINOPHEN [Suspect]
     Active Substance: ACETAMINOPHEN
  2. AMOXICILLIN [Suspect]
     Active Substance: AMOXICILLIN

REACTIONS (1)
  - Acute febrile neutrophilic dermatosis [Recovering/Resolving]
